FAERS Safety Report 9237037 (Version 2)
Quarter: 2013Q2

REPORT INFORMATION
  Report Type: Report from Study
  Country: JP (occurrence: JP)
  Receive Date: 20130417
  Receipt Date: 20130419
  Transmission Date: 20140414
  Serious: Yes (Death)
  Sender: FDA-Public Use
  Company Number: JP-PFIZER INC-2013120509

PATIENT
  Age: 66 Year
  Sex: Female

DRUGS (2)
  1. CISPLATIN [Suspect]
     Indication: SMALL CELL LUNG CANCER
     Dosage: 60 MG/M2 ON DAY 1 (IP), CYCLIC, ON DAY 1
     Route: 042
  2. CAMPTO [Suspect]
     Indication: SMALL CELL LUNG CANCER
     Dosage: 40 MG/M2 1XDAY, CYCLIC, ON DAYS 1, 8, AND 15
     Route: 042

REACTIONS (1)
  - Radiation pneumonitis [Fatal]
